FAERS Safety Report 4758972-1 (Version None)
Quarter: 2005Q3

REPORT INFORMATION
  Report Type: 
  Country: None (occurrence: None)
  Receive Date: 20050826
  Receipt Date: 20050810
  Transmission Date: 20060218
  Serious: Yes (Other)
  Sender: FDA-Public Use
  Company Number: PHBS2005US11685

PATIENT
  Age: 78 Year
  Sex: Female

DRUGS (4)
  1. VISUDYNE [Suspect]
     Indication: MACULAR DEGENERATION
     Dosage: 6 MG/M^2 ONCE IV
     Route: 042
  2. VISUDYNE [Suspect]
     Indication: RETINAL NEOVASCULARISATION
     Dosage: 6 MG/M^2 ONCE IV
     Route: 042
  3. KENALOG [Suspect]
     Indication: MACULAR DEGENERATION
     Dosage: 4 MG DAILY EY
  4. KENALOG [Suspect]
     Indication: RETINAL NEOVASCULARISATION
     Dosage: 4 MG DAILY EY

REACTIONS (5)
  - CHOROIDAL INFARCTION [None]
  - CONDITION AGGRAVATED [None]
  - HYPOPERFUSION [None]
  - POST PROCEDURAL COMPLICATION [None]
  - RETINAL PIGMENT EPITHELIOPATHY [None]
